FAERS Safety Report 11096084 (Version 1)
Quarter: 2015Q2

REPORT INFORMATION
  Report Type: Spontaneous
  Country: FR (occurrence: None)
  Receive Date: 20150505
  Receipt Date: 20150505
  Transmission Date: 20150821
  Serious: Yes (Other)
  Sender: FDA-Public Use
  Company Number: 2015FR001403

PATIENT
  Age: 61 Year
  Sex: Male
  Weight: 90 kg

DRUGS (1)
  1. ELIGARD [Suspect]
     Active Substance: LEUPROLIDE ACETATE
     Indication: PROSTATE CANCER
     Dosage: CYCLIC,  EVERY 6 MONTHS,  SUBCUTANEOUS
     Route: 058
     Dates: start: 20121116, end: 20150204

REACTIONS (4)
  - Incorrect dose administered [None]
  - Wrong drug administered [None]
  - Drug prescribing error [None]
  - Syringe issue [None]

NARRATIVE: CASE EVENT DATE: 20150204
